FAERS Safety Report 5643043-2 (Version None)
Quarter: 2008Q1

REPORT INFORMATION
  Report Type: 
  Country: None (occurrence: None)
  Receive Date: 20080228
  Receipt Date: 20080219
  Transmission Date: 20080703
  Serious: Yes (Hospitalization)
  Sender: FDA-Public Use
  Company Number: PHBS2008GT02381

PATIENT
  Age: 85 Year
  Sex: Female

DRUGS (4)
  1. OMEPRAZOLE [Concomitant]
     Dosage: 20 MG/DAY
     Route: 048
  2. DIOVAN HCT [Suspect]
     Indication: HYPERTENSION
     Dosage: VALS 320 / HCT 12.5 MG/DAY
     Route: 048
  3. DILTIAZEM [Concomitant]
     Dosage: 120 MG/DAY
     Route: 048
  4. ASPIRIN [Concomitant]
     Dosage: 81 MG/DAY
     Route: 048

REACTIONS (12)
  - BLOOD CHLORIDE DECREASED [None]
  - BLOOD PRESSURE INADEQUATELY CONTROLLED [None]
  - DIZZINESS [None]
  - ELECTROCARDIOGRAM ABNORMAL [None]
  - HAEMOGLOBIN DECREASED [None]
  - HEADACHE [None]
  - HYPOMAGNESAEMIA [None]
  - HYPONATRAEMIA [None]
  - NORMOCHROMIC NORMOCYTIC ANAEMIA [None]
  - SUPRAVENTRICULAR EXTRASYSTOLES [None]
  - THROMBOCYTHAEMIA [None]
  - VENTRICULAR EXTRASYSTOLES [None]
